FAERS Safety Report 4733842-3 (Version None)
Quarter: 2005Q3

REPORT INFORMATION
  Report Type: 
  Country: None (occurrence: None)
  Receive Date: 20050803
  Receipt Date: 20050311
  Transmission Date: 20060218
  Serious: Yes (Hospitalization)
  Sender: FDA-Public Use
  Company Number: US-MERCK-0503USA02731

PATIENT
  Age: 56 Year
  Sex: Male
  Weight: 86 kg

DRUGS (6)
  1. VIOXX [Suspect]
     Indication: ARTHRITIS
     Route: 048
     Dates: start: 19990101
  2. VIOXX [Suspect]
     Route: 048
     Dates: end: 20040101
  3. ASPIRIN [Concomitant]
     Route: 065
     Dates: start: 19990101
  4. PLAVIX [Concomitant]
     Route: 065
     Dates: start: 19960101
  5. PRAVACHOL [Concomitant]
     Route: 065
     Dates: start: 19960101
  6. BENICAR [Concomitant]
     Route: 065
     Dates: start: 19960101

REACTIONS (8)
  - ANEURYSM [None]
  - ARTHRALGIA [None]
  - HEADACHE [None]
  - HEART RATE IRREGULAR [None]
  - MYOCARDIAL INFARCTION [None]
  - OEDEMA PERIPHERAL [None]
  - PAIN [None]
  - SWELLING [None]
